FAERS Safety Report 13391701 (Version 1)
Quarter: 2017Q1

REPORT INFORMATION
  Report Type: Spontaneous
  Country: BR (occurrence: BR)
  Receive Date: 20170331
  Receipt Date: 20170331
  Transmission Date: 20170429
  Serious: Yes (Other)
  Sender: FDA-Public Use
  Company Number: BR-ALEXION-A201703188

PATIENT
  Age: 30 Year
  Sex: Female
  Weight: 40 kg

DRUGS (2)
  1. SOLIRIS [Suspect]
     Active Substance: ECULIZUMAB
     Indication: HAEMOLYTIC URAEMIC SYNDROME
     Dosage: 900 MG, UNK
     Route: 042
     Dates: start: 20160701
  2. SOLIRIS [Suspect]
     Active Substance: ECULIZUMAB
     Dosage: 1200 MG, UNK
     Route: 042
     Dates: start: 20160729

REACTIONS (5)
  - Thrombotic microangiopathy [Unknown]
  - Haemolysis [Not Recovered/Not Resolved]
  - Thrombocytopenia [Unknown]
  - Red blood cell abnormality [Unknown]
  - Blood lactate dehydrogenase increased [Unknown]
